FAERS Safety Report 8355751-3 (Version None)
Quarter: 2012Q2

REPORT INFORMATION
  Report Type: 
  Country: None (occurrence: None)
  Receive Date: 20120514
  Receipt Date: 20120511
  Transmission Date: 20120825
  Serious: No
  Sender: FDA-Public Use
  Company Number: US-PFIZER INC-2012115726

PATIENT
  Sex: Female
  Weight: 59.864 kg

DRUGS (2)
  1. CHANTIX [Suspect]
     Indication: SMOKING CESSATION THERAPY
     Dosage: 0.5 MG, 1X/DAY
     Route: 048
     Dates: start: 20120401, end: 20120101
  2. CHANTIX [Suspect]
     Dosage: 1 MG, 2X/DAY
     Route: 048
     Dates: start: 20120101

REACTIONS (5)
  - PARAESTHESIA ORAL [None]
  - ABNORMAL DREAMS [None]
  - DRUG INTOLERANCE [None]
  - NAUSEA [None]
  - MIDDLE INSOMNIA [None]
